FAERS Safety Report 19294670 (Version 1)
Quarter: 2021Q2

REPORT INFORMATION
  Report Type: Spontaneous
  Country: US (occurrence: US)
  Receive Date: 20210524
  Receipt Date: 20210524
  Transmission Date: 20210717
  Serious: Yes (Hospitalization)
  Sender: FDA-Public Use
  Company Number: None

PATIENT
  Age: 84 Year
  Sex: Female
  Weight: 56.25 kg

DRUGS (7)
  1. DAILY MULTI?VITAMIN [Concomitant]
     Active Substance: VITAMINS
  2. RADIATION [Concomitant]
     Active Substance: RADIATION THERAPY
  3. ORAL CHEMO [Concomitant]
  4. MORPHINE [Concomitant]
     Active Substance: MORPHINE
  5. HEPARIN [Suspect]
     Active Substance: HEPARIN SODIUM
     Indication: THROMBOSIS PROPHYLAXIS
  6. ZOFRAN [Concomitant]
     Active Substance: ONDANSETRON HYDROCHLORIDE
  7. CALCUIUM SUPPLEMENT [Concomitant]

REACTIONS (9)
  - Abdominal discomfort [None]
  - Weight decreased [None]
  - Pyrexia [None]
  - Decreased appetite [None]
  - Discoloured vomit [None]
  - Productive cough [None]
  - Asthenia [None]
  - Urinary tract infection [None]
  - Pneumonia [None]

NARRATIVE: CASE EVENT DATE: 20210331
